FAERS Safety Report 16631211 (Version 2)
Quarter: 2019Q3

REPORT INFORMATION
  Report Type: Spontaneous
  Country: US (occurrence: US)
  Receive Date: 20190725
  Receipt Date: 20190730
  Transmission Date: 20191004
  Serious: Yes (Other)
  Sender: FDA-Public Use
  Company Number: US-PFIZER INC-2019315131

PATIENT
  Age: 50 Year
  Sex: Male
  Weight: 61.22 kg

DRUGS (1)
  1. PANTOPRAZOLE [Suspect]
     Active Substance: PANTOPRAZOLE
     Indication: GASTRITIS EROSIVE
     Dosage: 40 MG, 2X/DAY
     Route: 048

REACTIONS (13)
  - Headache [Not Recovered/Not Resolved]
  - Abdominal pain [Not Recovered/Not Resolved]
  - Flatulence [Not Recovered/Not Resolved]
  - Dizziness [Not Recovered/Not Resolved]
  - Weight decreased [Unknown]
  - Product use issue [Not Recovered/Not Resolved]
  - Nausea [Not Recovered/Not Resolved]
  - Diarrhoea [Not Recovered/Not Resolved]
  - Prescribed overdose [Not Recovered/Not Resolved]
  - Off label use [Unknown]
  - Vomiting [Not Recovered/Not Resolved]
  - Arthralgia [Not Recovered/Not Resolved]
  - Peripheral swelling [Not Recovered/Not Resolved]

NARRATIVE: CASE EVENT DATE: 201801
